FAERS Safety Report 19508902 (Version 1)
Quarter: 2021Q3

REPORT INFORMATION
  Report Type: Spontaneous
  Country: US (occurrence: US)
  Receive Date: 20210708
  Receipt Date: 20210708
  Transmission Date: 20211014
  Serious: No
  Sender: FDA-Public Use
  Company Number: US-SA-2021SA215197

PATIENT
  Age: 45 Year
  Sex: Male

DRUGS (1)
  1. LANTUS SOLOSTAR [Suspect]
     Active Substance: INSULIN GLARGINE
     Indication: TYPE 2 DIABETES MELLITUS
     Dosage: 43 IU,QD (ONCE DAILY)
     Route: 065
     Dates: start: 202011

REACTIONS (4)
  - Rehabilitation therapy [Unknown]
  - Thermal burn [Unknown]
  - COVID-19 [Unknown]
  - Product dose omission issue [Unknown]
